FAERS Safety Report 9058800 (Version 1)
Quarter: 2013Q1

REPORT INFORMATION
  Report Type: Spontaneous
  Country: IT (occurrence: IT)
  Receive Date: 20130204
  Receipt Date: 20130204
  Transmission Date: 20140127
  Serious: Yes (Hospitalization)
  Sender: FDA-Public Use
  Company Number: IT-BAYER-2013-011404

PATIENT
  Age: 75 Year
  Sex: Female

DRUGS (6)
  1. ACETYLSALICYLIC ACID({=100 MG) [Suspect]
     Dosage: 100 MG, QD
     Route: 048
     Dates: start: 20020101, end: 20121212
  2. ATENOL [Concomitant]
  3. RAMIPRIL [Concomitant]
  4. LANSOPRAZOLE [Concomitant]
  5. LEVODOPA W/BENSERAZIDE/ [Concomitant]
     Indication: PARKINSONISM
  6. AMITRIPTYLINE [Concomitant]
     Indication: DEPRESSION

REACTIONS (2)
  - Cerebral haematoma [Unknown]
  - Gait disturbance [Unknown]
